FAERS Safety Report 25584676 (Version 1)
Quarter: 2025Q3

REPORT INFORMATION
  Report Type: Report from Study
  Country: US (occurrence: US)
  Receive Date: 20250721
  Receipt Date: 20250721
  Transmission Date: 20251020
  Serious: No
  Sender: SUNOVION
  Company Number: US-SUMITOMO PHARMA SWITZERLAND GMBH-2025SPA005666

PATIENT

DRUGS (13)
  1. ORGOVYX [Suspect]
     Active Substance: RELUGOLIX
     Indication: Prostate cancer
     Dosage: 120 MG, QD
     Route: 048
     Dates: start: 20250502
  2. ASPIRIN [Concomitant]
     Active Substance: ASPIRIN
     Route: 048
  3. COLAZAL [Concomitant]
     Active Substance: BALSALAZIDE DISODIUM
     Route: 048
  4. VITAMINS [Concomitant]
     Active Substance: VITAMINS
     Route: 048
  5. VITAMIN D3 [Concomitant]
     Active Substance: CHOLECALCIFEROL
     Route: 048
  6. DIETARY SUPPLEMENT\GRAPE SEED EXTRACT [Concomitant]
     Active Substance: DIETARY SUPPLEMENT\GRAPE SEED EXTRACT
     Route: 048
  7. LATANOPROST [Concomitant]
     Active Substance: LATANOPROST
     Route: 047
  8. LEVOTHYROXINE SODIUM [Concomitant]
     Active Substance: LEVOTHYROXINE SODIUM
     Route: 048
  9. VITAMINS [Concomitant]
     Active Substance: VITAMINS
     Route: 048
  10. NIACINAMIDE [Concomitant]
     Active Substance: NIACINAMIDE
     Route: 048
  11. ROSUVASTATIN CALCIUM [Concomitant]
     Active Substance: ROSUVASTATIN CALCIUM
     Route: 048
  12. SILDENAFIL CITRATE [Concomitant]
     Active Substance: SILDENAFIL CITRATE
     Route: 048
  13. TIMOLOL MALEATE [Concomitant]
     Active Substance: TIMOLOL MALEATE
     Route: 047

REACTIONS (4)
  - Somnolence [Unknown]
  - Tooth infection [Unknown]
  - Fatigue [Unknown]
  - Incorrect dose administered [Unknown]
